FAERS Safety Report 4884400-1 (Version None)
Quarter: 2006Q1

REPORT INFORMATION
  Report Type: 
  Country: None (occurrence: None)
  Receive Date: 20060117
  Receipt Date: 20060117
  Transmission Date: 20060701
  Serious: Yes (Death)
  Sender: FDA-Public Use
  Company Number: None

PATIENT
  Sex: Female
  Weight: 11.7 kg

DRUGS (5)
  1. CARBOPLATIN [Suspect]
     Indication: NEUROBLASTOMA
     Dosage: SEE IMAGE
     Dates: start: 20051207, end: 20051210
  2. ETOPOSIDE [Suspect]
     Dosage: SEE IMAGE
     Dates: start: 20051207, end: 20051210
  3. G-CSF (FILGRASTIM, AMGEN) [Suspect]
     Dosage: SEE IMAGE
     Dates: start: 20051214, end: 20051220
  4. G-CSF (FILGRASTIM, AMGEN) [Suspect]
     Dosage: SEE IMAGE
     Dates: start: 20051207
  5. MELPHALAN [Suspect]
     Dosage: SEE IMAGE
     Dates: start: 20051207, end: 20051209

REACTIONS (18)
  - ABDOMINAL DISTENSION [None]
  - ACUTE RESPIRATORY FAILURE [None]
  - ASCITES [None]
  - BRADYCARDIA [None]
  - CARDIO-RESPIRATORY ARREST [None]
  - CARDIOVASCULAR DISORDER [None]
  - FLUID RETENTION [None]
  - GASTROINTESTINAL DISORDER [None]
  - GENERAL PHYSICAL HEALTH DETERIORATION [None]
  - HYPOKALAEMIA [None]
  - HYPONATRAEMIA [None]
  - HYPOTENSION [None]
  - NEUTROPENIA [None]
  - OXYGEN SATURATION DECREASED [None]
  - RESPIRATORY DISTRESS [None]
  - SEPSIS [None]
  - SEPTIC SHOCK [None]
  - URINE OUTPUT DECREASED [None]
